FAERS Safety Report 8060252-6 (Version None)
Quarter: 2012Q1

REPORT INFORMATION
  Report Type: 
  Country: None (occurrence: None)
  Receive Date: 20120119
  Receipt Date: 20120119
  Transmission Date: 20120608
  Serious: Yes (Hospitalization)
  Sender: FDA-Public Use
  Company Number: None

PATIENT
  Age: 67 Year
  Sex: Female
  Weight: 75.7 kg

DRUGS (13)
  1. TEGRETOL [Suspect]
     Indication: NEUROPATHY PERIPHERAL
     Dosage: 200MG X 2 BID PO CHRONIC
     Route: 048
  2. AMOXICILLIN [Concomitant]
  3. AMITRIPTYLINE HCL [Concomitant]
  4. CRESTOR [Concomitant]
  5. ZETIA [Concomitant]
  6. SYMBICORT [Concomitant]
  7. METRONIDOZOLE [Concomitant]
  8. FOLIC ACID [Concomitant]
  9. OMEPRAZOLE [Concomitant]
  10. AZITHROMYCIN [Concomitant]
  11. BENICAR HCT [Concomitant]
  12. SYNTHROID [Concomitant]
  13. FLUTICASONE PROPIONATE [Concomitant]

REACTIONS (5)
  - HYPOTENSION [None]
  - DIZZINESS [None]
  - RENAL FAILURE ACUTE [None]
  - TOXICITY TO VARIOUS AGENTS [None]
  - DEHYDRATION [None]
